FAERS Safety Report 5247201-0 (Version None)
Quarter: 2007Q1

REPORT INFORMATION
  Report Type: 
  Country: None (occurrence: None)
  Receive Date: 20070221
  Receipt Date: 20070208
  Transmission Date: 20070707
  Serious: No
  Sender: FDA-Public Use
  Company Number: 236342

PATIENT
  Age: 16 Year
  Sex: Male

DRUGS (5)
  1. NUTROPIN [Suspect]
     Indication: GROWTH HORMONE DEFICIENCY
     Dosage: 3 MG, 6/WEEK, SUBCUTANEOUS
     Route: 058
     Dates: start: 19941017
  2. ADDERALL XR (AMPHETAMINE ASPARTATE, AMPHETAMINE SULFATE, SACCHARATE, D [Concomitant]
  3. LUPRON DEPOT [Concomitant]
  4. SYNTHROID [Concomitant]
  5. ZOLOFT [Concomitant]

REACTIONS (1)
  - GOITRE [None]
